FAERS Safety Report 11009621 (Version 3)
Quarter: 2015Q3

REPORT INFORMATION
  Report Type: Report from Study
  Country: JP (occurrence: JP)
  Receive Date: 20150410
  Receipt Date: 20150701
  Transmission Date: 20151125
  Serious: Yes (Death, Other)
  Sender: FDA-Public Use
  Company Number: JP-BRISTOL-MYERS SQUIBB COMPANY-BMS-2015-007115

PATIENT
  Age: 74 Year
  Sex: Male

DRUGS (1)
  1. NIVOLUMAB [Suspect]
     Active Substance: NIVOLUMAB
     Indication: MALIGNANT MELANOMA
     Dosage: 2 MG/KG, UNK
     Route: 041
     Dates: start: 20141226

REACTIONS (7)
  - Blood pressure increased [Recovering/Resolving]
  - Decreased appetite [Recovering/Resolving]
  - Malignant neoplasm progression [Fatal]
  - Cerebral infarction [Fatal]
  - Pruritus [Recovering/Resolving]
  - Urinary retention [Recovering/Resolving]
  - Cerebral haemorrhage [Unknown]

NARRATIVE: CASE EVENT DATE: 201501
